FAERS Safety Report 5599920-4 (Version None)
Quarter: 2008Q1

REPORT INFORMATION
  Report Type: 
  Country: None (occurrence: None)
  Receive Date: 20080123
  Receipt Date: 20080110
  Transmission Date: 20080703
  Serious: Yes (Hospitalization, Other)
  Sender: FDA-Public Use
  Company Number: US-AMGEN-QUU244242

PATIENT
  Sex: Female
  Weight: 79 kg

DRUGS (4)
  1. ENBREL [Suspect]
     Indication: PSORIASIS
     Route: 058
     Dates: start: 20060301
  2. ATENOLOL [Concomitant]
  3. COUMADIN [Concomitant]
  4. ALPRAZOLAM [Concomitant]

REACTIONS (7)
  - AORTIC ARTERIOSCLEROSIS [None]
  - AORTIC VALVE SCLEROSIS [None]
  - ATRIAL FIBRILLATION [None]
  - DIZZINESS [None]
  - METRORRHAGIA [None]
  - SICK SINUS SYNDROME [None]
  - TRANSIENT ISCHAEMIC ATTACK [None]
